FAERS Safety Report 5047627-4 (Version None)
Quarter: 2006Q3

REPORT INFORMATION
  Report Type: 
  Country: None (occurrence: None)
  Receive Date: 20060705
  Receipt Date: 20060619
  Transmission Date: 20061208
  Serious: Yes (Hospitalization)
  Sender: FDA-Public Use
  Company Number: 2006US003163

PATIENT
  Age: 65 Year
  Sex: Female

DRUGS (18)
  1. ALOXI [Suspect]
     Indication: PROPHYLAXIS OF NAUSEA AND VOMITING
     Dosage: 0.25 MG, Q2WK, INTRAVENOUS
     Route: 042
     Dates: start: 20060102, end: 20060428
  2. DEXAMETHASONE [Suspect]
     Indication: PROPHYLAXIS OF NAUSEA AND VOMITING
     Dosage: 10 MG, Q2WK, INTRAVENOUS
     Route: 042
     Dates: start: 20060102, end: 20060428
  3. OXALIPLATIN(OXALIPLATIN) [Suspect]
     Indication: MALIGNANT NEOPLASM OF ISLETS OF LANGERHANS
     Dosage: 125 MG, 65 MG/M^2, Q2WK, INTRAVENOUS
     Route: 042
     Dates: start: 20060428, end: 20060428
  4. FLUOROURACIL [Suspect]
     Indication: MALIGNANT NEOPLASM OF ISLETS OF LANGERHANS
     Dosage: 620MG + 1870MG, 320MG/M^2 + 960 MG/M^2, Q2WK, INTRAVENOUS
     Route: 042
     Dates: start: 20060426, end: 20060428
  5. LEUCOVORIN CALCIUM [Suspect]
     Indication: MALIGNANT NEOPLASM OF ISLETS OF LANGERHANS
     Dosage: 390 MG, 200 MG/M^2, Q2WK, INTRAVENOUS
     Route: 042
     Dates: start: 20060428, end: 20060428
  6. AVASTIN [Suspect]
     Indication: MALIGNANT NEOPLASM OF ISLETS OF LANGERHANS
     Dosage: 375 MG, 5 MG/KG, Q2WK, INTRAVENOUS
     Route: 042
     Dates: start: 20060428, end: 20060428
  7. VICODIN [Concomitant]
  8. PANCREASE /00150201/ (PANCRELIPASE) [Concomitant]
  9. CELEXA [Concomitant]
  10. COMPAZINE /00013304/ (PROCHLORPERAZINE MALEATE) [Concomitant]
  11. ATIVAN [Concomitant]
  12. KYTRIL /01178101/ (GRANISETRON) [Concomitant]
  13. HYDROCHLORZIDE (HYDROCHLOROTHIAZIDE) [Concomitant]
  14. COLACE (DOCUSATE SODIUM) [Concomitant]
  15. OXYCONTIN [Concomitant]
  16. PROTONIX /01263201/ (PANTOPRAZOLE) [Concomitant]
  17. CARAFATE [Concomitant]
  18. NORAVASC /00972401/ (AMLODIPINE) [Concomitant]

REACTIONS (7)
  - ABDOMINAL PAIN [None]
  - AORTIC THROMBOSIS [None]
  - BACK PAIN [None]
  - BLOOD PRESSURE INCREASED [None]
  - CHEST PAIN [None]
  - DYSPNOEA [None]
  - VOMITING [None]
